FAERS Safety Report 9524275 (Version 2)
Quarter: 2013Q3

REPORT INFORMATION
  Report Type: Report from Study
  Country: US (occurrence: US)
  Receive Date: 20130916
  Receipt Date: 20130927
  Transmission Date: 20140515
  Serious: Yes (Other)
  Sender: FDA-Public Use
  Company Number: US-ALEXION PHARMACEUTICALS INC.-A201302195

PATIENT
  Age: 77 Year
  Sex: Male
  Weight: 54.4 kg

DRUGS (10)
  1. SOLIRIS [Suspect]
     Indication: PAROXYSMAL NOCTURNAL HAEMOGLOBINURIA
     Dosage: 600 MG, QW X 4
     Route: 042
     Dates: start: 20130806
  2. SOLIRIS [Suspect]
     Dosage: 900 MG, Q2W
     Route: 042
     Dates: start: 20130910
  3. TAPAZOLE [Concomitant]
     Dosage: UNK
  4. NORVASC [Concomitant]
     Dosage: UNK
  5. LOSARTAN POTASSICO [Concomitant]
     Dosage: UNK
  6. COREG [Concomitant]
     Dosage: UNK
  7. KCL [Concomitant]
     Dosage: UNK
  8. VITAMIN D [Concomitant]
     Dosage: UNK
  9. ZOLOFT [Concomitant]
     Dosage: UNK
  10. ZOCOR [Concomitant]
     Dosage: UNK

REACTIONS (6)
  - Oxygen saturation decreased [Recovering/Resolving]
  - Condition aggravated [Recovering/Resolving]
  - Haemoglobin decreased [Recovering/Resolving]
  - Haematocrit decreased [Unknown]
  - Dyspnoea [Recovering/Resolving]
  - Fatigue [Recovering/Resolving]
